FAERS Safety Report 6128090-9 (Version None)
Quarter: 2009Q1

REPORT INFORMATION
  Report Type: 
  Country: None (occurrence: None)
  Receive Date: 20090320
  Receipt Date: 20090320
  Transmission Date: 20090719
  Serious: Yes (Hospitalization, Disabling)
  Sender: FDA-Public Use
  Company Number: None

PATIENT
  Sex: Female

DRUGS (2)
  1. FOSAMAX [Suspect]
     Indication: OSTEOPOROSIS
     Dosage: 70 MG WEEKLY ORAL
     Route: 048
     Dates: start: 20000101, end: 20090101
  2. METOPROLOL [Concomitant]

REACTIONS (6)
  - BONE DISORDER [None]
  - ERYTHEMA [None]
  - FISTULA [None]
  - ORAL CAVITY FISTULA [None]
  - PURULENT DISCHARGE [None]
  - SKIN INDURATION [None]
